FAERS Safety Report 4414140-4 (Version None)
Quarter: 2004Q3

REPORT INFORMATION
  Report Type: 
  Country: None (occurrence: None)
  Receive Date: 20040729
  Receipt Date: 20030818
  Transmission Date: 20050211
  Serious: Yes (Death)
  Sender: FDA-Public Use
  Company Number: M2004-0911

PATIENT
  Age: 20 Year
  Sex: Female

DRUGS (7)
  1. DIAZEPAM [Suspect]
     Dosage: 20MG QD
     Dates: start: 19980610, end: 19980610
  2. SUBLIMAZE [Suspect]
     Indication: ANALGESIC EFFECT
     Dosage: 0.1MG QD
  3. VALPROIC ACID [Concomitant]
  4. MORPHINE [Concomitant]
  5. NITROUS OXIDE [Concomitant]
  6. PROPOFOL [Concomitant]
  7. ATRACURIUM BESYLATE [Concomitant]

REACTIONS (3)
  - CARDIAC ARREST [None]
  - MEDICATION ERROR [None]
  - RESPIRATORY FAILURE [None]
